FAERS Safety Report 8861951 (Version 2)
Quarter: 2012Q4

REPORT INFORMATION
  Report Type: 
  Country: US (occurrence: ZA)
  Receive Date: 20121025
  Receipt Date: 20121127
  Transmission Date: 20130627
  Serious: Yes (Life-Threatening, Hospitalization)
  Sender: FDA-Public Use
  Company Number: ZA-ASTRAZENECA-2012SE80981

PATIENT
  Age: 3 Month
  Sex: Male
  Weight: 5 kg

DRUGS (2)
  1. SYNAGIS [Suspect]
     Indication: PREMATURE BABY
     Route: 030
     Dates: start: 20120727
  2. DEMAZIN [Concomitant]
     Route: 048
     Dates: start: 201208

REACTIONS (5)
  - Apnoea [Unknown]
  - Pertussis [Unknown]
  - Pneumonia [Unknown]
  - Respiratory syncytial virus bronchitis [Recovered/Resolved]
  - Drug ineffective [Unknown]
